FAERS Safety Report 15452217 (Version 2)
Quarter: 2020Q2

REPORT INFORMATION
  Report Type: Spontaneous
  Country: BR (occurrence: BR)
  Receive Date: 20181001
  Receipt Date: 20200422
  Transmission Date: 20200713
  Serious: Yes (Death, Life-Threatening, Other)
  Sender: FDA-Public Use
  Company Number: BR-SA-2018SA258796

PATIENT
  Age: 17 Year
  Sex: Male

DRUGS (10)
  1. VORICONAZOLE. [Suspect]
     Active Substance: VORICONAZOLE
     Dosage: 4 MG/KG, Q12H
  2. FLUDARABINE PHOSPHATE. [Suspect]
     Active Substance: FLUDARABINE PHOSPHATE
     Indication: ALLOGENIC STEM CELL TRANSPLANTATION
     Dosage: 180 MG/M2
  3. CYCLOSPORIN A [Suspect]
     Active Substance: CYCLOSPORINE
     Indication: PROPHYLAXIS AGAINST GRAFT VERSUS HOST DISEASE
  4. METHYLPREDNISOLONE. [Suspect]
     Active Substance: METHYLPREDNISOLONE
     Dosage: 2 MG/KG
  5. ANTI-THYMOCYTE GLOBULIN (RABBIT) NOS [Suspect]
     Active Substance: LAPINE T-LYMPHOCYTE IMMUNE GLOBULIN
     Indication: STEM CELL TRANSPLANT
  6. METHYLPREDNISOLONE. [Suspect]
     Active Substance: METHYLPREDNISOLONE
     Indication: PROPHYLAXIS AGAINST GRAFT VERSUS HOST DISEASE
     Dosage: 1 MG/KG
  7. BUSULFAN. [Suspect]
     Active Substance: BUSULFAN
     Indication: ALLOGENIC STEM CELL TRANSPLANTATION
     Dosage: 16 MG/KG
  8. CEFEPIME [Concomitant]
     Active Substance: CEFEPIME HYDROCHLORIDE
     Indication: GRAFT VERSUS HOST DISEASE IN GASTROINTESTINAL TRACT
     Dosage: 2 G, Q8H
  9. VORICONAZOLE. [Suspect]
     Active Substance: VORICONAZOLE
     Indication: ANTIFUNGAL PROPHYLAXIS
     Dosage: 6 MG/KG, Q12H
  10. METRONIDAZOLE. [Concomitant]
     Active Substance: METRONIDAZOLE
     Indication: GRAFT VERSUS HOST DISEASE IN GASTROINTESTINAL TRACT
     Dosage: 500 MG, Q8H

REACTIONS (5)
  - Respiratory failure [Fatal]
  - Shock [Fatal]
  - Scedosporium infection [Fatal]
  - Pyrexia [Fatal]
  - Enterococcal infection [Unknown]
